FAERS Safety Report 9143644 (Version 2)
Quarter: 2013Q1

REPORT INFORMATION
  Report Type: Spontaneous
  Country: BR (occurrence: BR)
  Receive Date: 20130306
  Receipt Date: 20130313
  Transmission Date: 20140127
  Serious: Yes (Other)
  Sender: FDA-Public Use
  Company Number: BR-ROCHE-1197856

PATIENT
  Sex: Female
  Weight: 53.3 kg

DRUGS (27)
  1. VESANOID [Suspect]
     Indication: ACUTE MYELOID LEUKAEMIA
     Route: 065
     Dates: start: 20121215, end: 20121218
  2. VESANOID [Suspect]
     Route: 065
     Dates: start: 20121221, end: 20130123
  3. ALLOPURINOL [Suspect]
     Indication: NEUTROPENIA
     Route: 065
     Dates: start: 20121216, end: 20130113
  4. ALLOPURINOL [Suspect]
     Indication: THROMBOCYTOPENIA
  5. ITRACONAZOLE [Suspect]
     Indication: NEUTROPENIA
     Route: 065
  6. ITRACONAZOLE [Suspect]
     Indication: THROMBOCYTOPENIA
  7. MEROPENEM [Suspect]
     Indication: NEUTROPENIA
     Route: 042
     Dates: start: 20130109, end: 20130114
  8. MEROPENEM [Suspect]
     Indication: THROMBOCYTOPENIA
  9. CYTARABINE [Suspect]
     Indication: CHEMOTHERAPY
     Route: 042
     Dates: start: 20121218, end: 20121222
  10. CYTARABINE [Suspect]
     Route: 042
     Dates: start: 20121224, end: 20121226
  11. OMEPRAZOLE [Suspect]
     Indication: PRODUCT USED FOR UNKNOWN INDICATION
     Route: 065
  12. ONDANSETRON [Suspect]
     Indication: PREMEDICATION
     Route: 042
  13. HYDROXYUREA [Concomitant]
     Indication: ACUTE MYELOID LEUKAEMIA
     Route: 065
     Dates: start: 20121215
  14. HYDROXYUREA [Concomitant]
     Route: 065
     Dates: start: 20121217, end: 20121217
  15. DEXAMETHASONE [Concomitant]
     Indication: ACUTE MYELOID LEUKAEMIA
     Route: 042
     Dates: start: 20121215, end: 20130106
  16. DAUNORUBICIN [Concomitant]
     Indication: CHEMOTHERAPY
     Route: 042
  17. ENOXAPARIN [Concomitant]
     Route: 065
     Dates: start: 20130104, end: 20130123
  18. NORETISTERON [Concomitant]
     Route: 065
     Dates: start: 20121216, end: 20130123
  19. AMLODIPINE [Concomitant]
     Route: 065
     Dates: start: 20121216, end: 20130123
  20. DIPYRONE [Concomitant]
  21. VANCOMYCIN [Concomitant]
     Route: 042
     Dates: start: 20121226, end: 20130114
  22. PIPERACILLIN SODIUM/TAZOBACTAM SODIUM [Concomitant]
     Route: 042
     Dates: start: 20121226, end: 20130109
  23. METRONIDAZOLE [Concomitant]
     Route: 048
     Dates: start: 20121226, end: 20130108
  24. ACICLOVIR [Concomitant]
     Route: 048
     Dates: start: 20121227, end: 20130108
  25. FUROSEMIDE [Concomitant]
     Route: 065
     Dates: start: 20121218, end: 20121220
  26. DEXAMETHASONE [Concomitant]
     Indication: PREMEDICATION
     Route: 042
  27. ONDANSETRON [Concomitant]

REACTIONS (3)
  - Hepatotoxicity [Recovered/Resolved]
  - Neutropenia [Unknown]
  - Thrombocytopenia [Unknown]
